FAERS Safety Report 18072620 (Version 1)
Quarter: 2020Q3

REPORT INFORMATION
  Report Type: Spontaneous
  Country: US (occurrence: US)
  Receive Date: 20200727
  Receipt Date: 20200727
  Transmission Date: 20201103
  Serious: No
  Sender: FDA-Public Use
  Company Number: US-ELI_LILLY_AND_COMPANY-US202007004207

PATIENT
  Sex: Female

DRUGS (4)
  1. HUMALOG [Suspect]
     Active Substance: INSULIN LISPRO
     Indication: TYPE 2 DIABETES MELLITUS
     Dosage: UNK, UNKNOWN
     Route: 058
     Dates: start: 2018
  2. HUMALOG [Suspect]
     Active Substance: INSULIN LISPRO
     Dosage: 25 U, TID
     Route: 058
  3. HUMALOG [Suspect]
     Active Substance: INSULIN LISPRO
     Indication: TYPE 2 DIABETES MELLITUS
     Dosage: UNK, UNKNOWN
     Route: 058
     Dates: start: 2018
  4. HUMALOG [Suspect]
     Active Substance: INSULIN LISPRO
     Dosage: 25 U, TID
     Route: 058

REACTIONS (5)
  - Glycosylated haemoglobin increased [Recovering/Resolving]
  - Blood glucose decreased [Recovered/Resolved]
  - Decreased appetite [Not Recovered/Not Resolved]
  - Tremor [Recovered/Resolved]
  - Blood glucose increased [Recovering/Resolving]
